FAERS Safety Report 19617831 (Version 1)
Quarter: 2021Q3

REPORT INFORMATION
  Report Type: Spontaneous
  Country: US (occurrence: US)
  Receive Date: 20210727
  Receipt Date: 20210727
  Transmission Date: 20211014
  Serious: No
  Sender: FDA-Public Use
  Company Number: US-JACOBUS PHARMACEUTICAL COMPANY, INC.-2114343

PATIENT
  Age: 75 Year
  Sex: Male

DRUGS (9)
  1. MIDODRINE HYDROCHLORIDE. [Concomitant]
     Active Substance: MIDODRINE HYDROCHLORIDE
  2. TYLENOL [Concomitant]
     Active Substance: ACETAMINOPHEN
  3. CYANOCOBALAMIN. [Concomitant]
     Active Substance: CYANOCOBALAMIN
  4. RUZURGI [Suspect]
     Active Substance: AMIFAMPRIDINE
     Indication: MYASTHENIC SYNDROME
     Route: 048
     Dates: start: 20210408
  5. ASPIRIN. [Concomitant]
     Active Substance: ASPIRIN
  6. FUROSEMIDE. [Concomitant]
     Active Substance: FUROSEMIDE
  7. VITAMIN D [Concomitant]
     Active Substance: VITAMIN D NOS
  8. ASPERCREME PAIN RELIEVING [Concomitant]
     Active Substance: TROLAMINE SALICYLATE
  9. ZINC. [Concomitant]
     Active Substance: ZINC

REACTIONS (1)
  - Muscle twitching [Unknown]
